FAERS Safety Report 9299562 (Version 1)
Quarter: 2013Q2

REPORT INFORMATION
  Report Type: Spontaneous
  Country: US (occurrence: US)
  Receive Date: 20130521
  Receipt Date: 20130521
  Transmission Date: 20140414
  Serious: Yes (Other)
  Sender: FDA-Public Use
  Company Number: US-009507513-1305USA011302

PATIENT
  Sex: Female

DRUGS (1)
  1. TEMODAR [Suspect]
     Dosage: UNK
     Route: 048
     Dates: start: 20130506, end: 20130506

REACTIONS (1)
  - Anaphylactic reaction [Recovered/Resolved]
